FAERS Safety Report 9482449 (Version 1)
Quarter: 2013Q3

REPORT INFORMATION
  Report Type: Spontaneous
  Country: US (occurrence: US)
  Receive Date: 20130828
  Receipt Date: 20130828
  Transmission Date: 20140515
  Serious: Yes (Hospitalization, Other)
  Sender: FDA-Public Use
  Company Number: 2013SP002375

PATIENT
  Age: 1 Day
  Sex: Male
  Weight: 3 kg

DRUGS (2)
  1. LATUDA [Suspect]
     Indication: PRODUCT USED FOR UNKNOWN INDICATION
     Dosage: APPROXIMATION OF GESTATION PERIOD AT EXPOSURE BASED ON START DATE OF DRUG AND DOB
     Dates: start: 201305, end: 20130815
  2. PROZAC [Suspect]
     Indication: PRODUCT USED FOR UNKNOWN INDICATION

REACTIONS (2)
  - Neonatal tachypnoea [Recovered/Resolved]
  - Exposure during pregnancy [Recovered/Resolved]
